FAERS Safety Report 11281566 (Version 3)
Quarter: 2015Q4

REPORT INFORMATION
  Report Type: Report from Study
  Country: TW (occurrence: TW)
  Receive Date: 20150717
  Receipt Date: 20151026
  Transmission Date: 20160304
  Serious: Yes (Hospitalization)
  Sender: FDA-Public Use
  Company Number: TW-009507513-1504TWN018447

PATIENT
  Age: 84 Year
  Sex: Male

DRUGS (1)
  1. PEMBROLIZUMAB. [Suspect]
     Active Substance: PEMBROLIZUMAB
     Indication: METASTATIC MALIGNANT MELANOMA
     Dosage: 2 MG/KG, Q3W , DAILY DOSE REPORTED AS 150 MG
     Route: 042
     Dates: start: 20150205, end: 20150604

REACTIONS (3)
  - Cellulitis [Recovered/Resolved]
  - Cellulitis [Unknown]
  - Arthritis bacterial [Recovered/Resolved]

NARRATIVE: CASE EVENT DATE: 20150408
